FAERS Safety Report 4932982-3 (Version None)
Quarter: 2006Q1

REPORT INFORMATION
  Report Type: 
  Country: None (occurrence: None)
  Receive Date: 20060301
  Receipt Date: 20060301
  Transmission Date: 20060701
  Serious: Yes (Hospitalization, Other)
  Sender: FDA-Public Use
  Company Number: None

PATIENT
  Sex: Male
  Weight: 68.6 kg

DRUGS (3)
  1. FLUOROURACIL [Suspect]
     Indication: COLON CANCER
     Dosage: 5000 MG
     Dates: end: 20060131
  2. LEUCOVORIN CALCIUM [Suspect]
     Dosage: 700 MG
     Dates: end: 20060131
  3. ELOXATIN [Suspect]
     Dosage: 154 MG
     Dates: end: 20060131

REACTIONS (4)
  - CHOLECYSTITIS [None]
  - PNEUMOTHORAX [None]
  - POST PROCEDURAL COMPLICATION [None]
  - PULMONARY HAEMATOMA [None]
